FAERS Safety Report 8604742 (Version 3)
Quarter: 2012Q4

REPORT INFORMATION
  Report Type: 
  Country: DE (occurrence: JP)
  Receive Date: 20120608
  Receipt Date: 20121030
  Transmission Date: 20130627
  Serious: Yes (Life-Threatening, Disabling)
  Sender: FDA-Public Use
  Company Number: JP-BRISTOL-MYERS SQUIBB COMPANY-16502148

PATIENT
  Age: 69 Year
  Sex: Male
  Weight: 49 kg

DRUGS (4)
  1. ERBITUX SOLN FOR INF 5MG/ML [Suspect]
     Indication: COLON CANCER
     Dosage: 12Mar-2Apr12 dose reduced to 375mg
recent inf 2Apr12
     Route: 041
     Dates: start: 20120305, end: 20120305
  2. 5-FLUOROURACIL [Suspect]
     Indication: COLON CANCER
     Dosage: IV bolus 19Mar-2Apr12-600mg 1in2wk(13days)
     Route: 041
     Dates: start: 20120305, end: 20120402
  3. CALCIUM LEVOFOLINATE [Suspect]
     Indication: COLON CANCER
     Route: 041
     Dates: start: 20120305, end: 20120402
  4. ELPLAT [Suspect]
     Indication: COLON CANCER
     Route: 041
     Dates: start: 20120305, end: 20120402

REACTIONS (5)
  - Decreased appetite [Recovering/Resolving]
  - Stomatitis [Recovered/Resolved]
  - Dysgeusia [Recovering/Resolving]
  - Acne [Recovering/Resolving]
  - Paronychia [Recovered/Resolved]
